FAERS Safety Report 4951075-2 (Version None)
Quarter: 2006Q1

REPORT INFORMATION
  Report Type: 
  Country: None (occurrence: None)
  Receive Date: 20060322
  Receipt Date: 20051123
  Transmission Date: 20060701
  Serious: Yes (Hospitalization)
  Sender: FDA-Public Use
  Company Number: US-MERCK-0511USA03994

PATIENT
  Age: 58 Year
  Sex: Male
  Weight: 101 kg

DRUGS (4)
  1. VIOXX [Suspect]
     Indication: PAIN
     Route: 048
     Dates: start: 20040108, end: 20040601
  2. VIOXX [Suspect]
     Route: 048
     Dates: start: 20040108, end: 20040601
  3. BENICAR [Concomitant]
     Indication: HYPERTENSION
     Route: 065
     Dates: start: 20030101
  4. NIASPAN [Concomitant]
     Indication: BLOOD CHOLESTEROL INCREASED
     Route: 065

REACTIONS (4)
  - BLINDNESS [None]
  - CEREBROVASCULAR ACCIDENT [None]
  - DEPRESSION [None]
  - VERTEBRAL ARTERY STENOSIS [None]
